FAERS Safety Report 6971731-4 (Version None)
Quarter: 2010Q3

REPORT INFORMATION
  Report Type: 
  Country: None (occurrence: None)
  Receive Date: 20100903
  Receipt Date: 20100827
  Transmission Date: 20110219
  Serious: Yes (Other)
  Sender: FDA-Public Use
  Company Number: 2010MA002153

PATIENT
  Age: 23 Year
  Sex: Female

DRUGS (3)
  1. RANITIDINE [Suspect]
     Indication: HYPERCHLORHYDRIA
     Dosage: 150 MG; PO
     Route: 048
     Dates: start: 20100816, end: 20100817
  2. CON MEDS [Concomitant]
  3. PREV MEDS [Concomitant]

REACTIONS (3)
  - CHEST PAIN [None]
  - DYSPNOEA [None]
  - HEART RATE INCREASED [None]
